FAERS Safety Report 24149818 (Version 3)
Quarter: 2024Q3

REPORT INFORMATION
  Report Type: Spontaneous
  Country: IN (occurrence: IN)
  Receive Date: 20240730
  Receipt Date: 20240912
  Transmission Date: 20241016
  Serious: Yes (Death, Hospitalization)
  Sender: HETERO
  Company Number: IN-HETERO-HET2024IN02454

PATIENT
  Sex: Female
  Weight: 52.8 kg

DRUGS (7)
  1. IVABRADINE [Suspect]
     Active Substance: IVABRADINE
     Indication: Product used for unknown indication
     Dosage: UNK, (HALF TABLET) QD
     Route: 048
  2. SPIRONOLACTONE\TORSEMIDE [Suspect]
     Active Substance: SPIRONOLACTONE\TORSEMIDE
     Indication: Product used for unknown indication
     Dosage: UNK, (HALF TABLET), BID
     Route: 048
  3. ROSUVA GOLD [Concomitant]
     Indication: Product used for unknown indication
     Dosage: UNK, QD (20NOS)
     Route: 065
  4. MYMARDA [Concomitant]
     Indication: Product used for unknown indication
     Dosage: UNK, BID
     Route: 065
  5. METOCARD XL [Concomitant]
     Indication: Product used for unknown indication
     Dosage: UNK,  QD
     Route: 065
  6. STALIX D [Concomitant]
     Indication: Product used for unknown indication
     Dosage: UNK, QD
     Route: 065
  7. CETAPIN XR [Concomitant]
     Indication: Product used for unknown indication
     Dosage: UNK, QD
     Route: 065

REACTIONS (2)
  - Death [Fatal]
  - Respiration abnormal [Unknown]

NARRATIVE: CASE EVENT DATE: 20240311
